FAERS Safety Report 6812105-6 (Version None)
Quarter: 2010Q2

REPORT INFORMATION
  Report Type: 
  Country: None (occurrence: None)
  Receive Date: 20100628
  Receipt Date: 20100615
  Transmission Date: 20101027
  Serious: Yes (Other)
  Sender: FDA-Public Use
  Company Number: 7008154

PATIENT
  Age: 29 Year
  Sex: Female

DRUGS (5)
  1. OVITRELLLE (CHORIOGONADOTROPIN ALFA) [Suspect]
     Indication: OVULATION DISORDER
     Dosage: 250 MCG, 1 IN 1 CYCLICAL, SUBCUTANEOUS, 250 MCG, 1 IN 1 CYCLICAL, SUBCUTANEOUS, 250 MCG, 1 IN 1 CYCL
     Route: 058
     Dates: start: 20100321, end: 20100321
  2. OVITRELLLE (CHORIOGONADOTROPIN ALFA) [Suspect]
     Indication: OVULATION DISORDER
     Dosage: 250 MCG, 1 IN 1 CYCLICAL, SUBCUTANEOUS, 250 MCG, 1 IN 1 CYCLICAL, SUBCUTANEOUS, 250 MCG, 1 IN 1 CYCL
     Route: 058
     Dates: start: 20100421, end: 20100421
  3. OVITRELLLE (CHORIOGONADOTROPIN ALFA) [Suspect]
     Indication: OVULATION DISORDER
     Dosage: 250 MCG, 1 IN 1 CYCLICAL, SUBCUTANEOUS, 250 MCG, 1 IN 1 CYCLICAL, SUBCUTANEOUS, 250 MCG, 1 IN 1 CYCL
     Route: 058
     Dates: start: 20100521, end: 20100521
  4. PERGOTIME (CLOMIFENE CITRATE) [Concomitant]
  5. VITAMINS (VITAMINS NOS) [Concomitant]

REACTIONS (9)
  - COUGH [None]
  - DISCOMFORT [None]
  - DIZZINESS [None]
  - DRUG HYPERSENSITIVITY [None]
  - ELECTROCARDIOGRAM ST SEGMENT ELEVATION [None]
  - HYPOTENSION [None]
  - NAUSEA [None]
  - PERIPHERAL COLDNESS [None]
  - SYNCOPE [None]
